FAERS Safety Report 9210566 (Version 2)
Quarter: 2013Q2

REPORT INFORMATION
  Report Type: Spontaneous
  Country: US (occurrence: US)
  Receive Date: 20130404
  Receipt Date: 20130507
  Transmission Date: 20140414
  Serious: Yes (Hospitalization)
  Sender: FDA-Public Use
  Company Number: CHPA2013US005532

PATIENT
  Age: 64 Year
  Sex: Female

DRUGS (1)
  1. MAALOX ANTACID BARRIER [Suspect]
     Indication: ABDOMINAL PAIN UPPER
     Dosage: UNK, PRN
     Route: 048
     Dates: end: 2013

REACTIONS (5)
  - Biliary colic [Recovered/Resolved]
  - Gastrointestinal disorder [Recovered/Resolved]
  - Disease recurrence [Recovered/Resolved]
  - Migraine [Unknown]
  - Off label use [Unknown]
